FAERS Safety Report 8346998-0 (Version None)
Quarter: 2012Q2

REPORT INFORMATION
  Report Type: 
  Country: None (occurrence: None)
  Receive Date: 20120509
  Receipt Date: 20120504
  Transmission Date: 20120825
  Serious: No
  Sender: FDA-Public Use
  Company Number: US-PFIZER INC-2012110296

PATIENT
  Sex: Male

DRUGS (2)
  1. ALPRAZOLAM [Suspect]
     Indication: PANIC ATTACK
     Dosage: 2 MG, AS NEEDED
  2. ALPRAZOLAM [Suspect]
     Indication: ANXIETY

REACTIONS (1)
  - DRUG INEFFECTIVE [None]
